FAERS Safety Report 5289325-8 (Version None)
Quarter: 2007Q2

REPORT INFORMATION
  Report Type: 
  Country: None (occurrence: None)
  Receive Date: 20070406
  Receipt Date: 20070328
  Transmission Date: 20071010
  Serious: Yes (Hospitalization)
  Sender: FDA-Public Use
  Company Number: PHBS2007JP04278

PATIENT
  Age: 77 Year
  Sex: Female
  Weight: 51 kg

DRUGS (4)
  1. LUDIOMIL [Suspect]
     Indication: DEPRESSION
     Dosage: 75 MG/D
     Route: 048
     Dates: start: 20060828, end: 20061107
  2. TSUMURA BYAKKOKANINJINTO [Suspect]
     Indication: THIRST
     Dosage: 9 G/D
     Route: 048
     Dates: start: 20060921, end: 20061107
  3. AMOBAN [Concomitant]
     Dosage: 7.5 MG/D
     Route: 048
     Dates: start: 20051122
  4. TECIPUL [Concomitant]
     Dosage: 2 MG/D
     Route: 048
     Dates: start: 20050922, end: 20061107

REACTIONS (11)
  - BLOOD LACTATE DEHYDROGENASE INCREASED [None]
  - BRONCHOALVEOLAR LAVAGE ABNORMAL [None]
  - C-REACTIVE PROTEIN INCREASED [None]
  - CELL MARKER INCREASED [None]
  - CHEST X-RAY ABNORMAL [None]
  - FATIGUE [None]
  - INTERSTITIAL LUNG DISEASE [None]
  - LUNG INFILTRATION [None]
  - OXYGEN SATURATION DECREASED [None]
  - PALPITATIONS [None]
  - WHITE BLOOD CELL COUNT INCREASED [None]
